FAERS Safety Report 7183593-3 (Version None)
Quarter: 2010Q4

REPORT INFORMATION
  Report Type: 
  Country: None (occurrence: None)
  Receive Date: 20101220
  Receipt Date: 20101220
  Transmission Date: 20110411
  Serious: Yes (Hospitalization)
  Sender: FDA-Public Use
  Company Number: None

PATIENT
  Age: 91 Year
  Sex: Female
  Weight: 75.5 kg

DRUGS (9)
  1. AMLODIPINE MALEATE/ BENAZEPRIL HYDROCHLORIDE [Suspect]
     Indication: HYPERTENSION
     Dosage: 2015 BI D PO  CHRONIC (FOR YEARS)
     Route: 048
  2. AMLODIPINE [Concomitant]
  3. HYDROCHLOROTHIAZIDE [Concomitant]
  4. METOPROLOL [Concomitant]
  5. CLONIDINE [Concomitant]
  6. VIT D [Concomitant]
  7. RISPERDAL [Concomitant]
  8. LEXAPRO [Concomitant]
  9. COSOPT [Concomitant]

REACTIONS (2)
  - ANGIOEDEMA [None]
  - RENAL FAILURE CHRONIC [None]
